FAERS Safety Report 8302462-6 (Version None)
Quarter: 2012Q2

REPORT INFORMATION
  Report Type: 
  Country: None (occurrence: None)
  Receive Date: 20120420
  Receipt Date: 20120307
  Transmission Date: 20120825
  Serious: Yes (Hospitalization)
  Sender: FDA-Public Use
  Company Number: DE-UCBSA-049965

PATIENT
  Sex: Female
  Weight: 75 kg

DRUGS (9)
  1. IRBESARTAN [Concomitant]
     Indication: HYPERTENSION
     Dosage: FREQUENCY 2
     Route: 048
     Dates: start: 20090101
  2. CALCIUM CARBONATE [Concomitant]
     Indication: OSTEOPOROSIS
     Dosage: FREQUENCY 2
     Route: 048
     Dates: start: 20090101
  3. IRBESARTAN [Concomitant]
     Indication: HYPERTENSION
     Dosage: FREQUENCY-1
     Route: 048
     Dates: start: 20110226
  4. CERTOLIZUMAB PEGOL [Suspect]
     Indication: RHEUMATOID ARTHRITIS
     Dosage: NO OF DOSES RECEIVED-24
     Route: 058
     Dates: start: 20110224, end: 20120119
  5. PREDNISOLONE [Concomitant]
     Indication: RHEUMATOID ARTHRITIS
     Route: 048
     Dates: start: 20070101
  6. LEFLUNOMIDE [Concomitant]
     Indication: RHEUMATOID ARTHRITIS
     Dosage: FREQUENCY 1
     Route: 048
     Dates: start: 20091201, end: 20120101
  7. LEFLUNOMIDE [Concomitant]
     Dosage: FREQUENCY 1
     Route: 048
     Dates: start: 20120120
  8. AMLODIPINE [Concomitant]
     Indication: HYPERTENSION
     Dosage: FREQUENCY-1
     Route: 048
     Dates: start: 20110101
  9. ERGOCALCIFEROL [Concomitant]
     Indication: OSTEOPOROSIS
     Dosage: FREQUENCY-1
     Route: 048
     Dates: start: 20110224

REACTIONS (3)
  - SYSTEMIC LUPUS ERYTHEMATOSUS [None]
  - PSORIASIS [None]
  - FUNGAL SKIN INFECTION [None]
